FAERS Safety Report 8490981-1 (Version None)
Quarter: 2012Q2

REPORT INFORMATION
  Report Type: 
  Country: None (occurrence: None)
  Receive Date: 20120617
  Receipt Date: 20120619
  Transmission Date: 20120825
  Serious: Yes (Death)
  Sender: FDA-Public Use
  Company Number: JPI-P-022225

PATIENT
  Age: 77 Year
  Sex: Male

DRUGS (3)
  1. LISINOPRIL [Concomitant]
  2. DILTIAZEM [Concomitant]
  3. XYREM [Suspect]
     Indication: SLEEP APNOEA SYNDROME
     Dosage: (UNKNOWN), ORAL 9 GM (4.5 GM, 2 IN 1 D), ORAL (2ND DATE NOT LEGIBLE)
     Route: 048
     Dates: start: 20040727

REACTIONS (1)
  - DEATH [None]
